FAERS Safety Report 24221755 (Version 1)
Quarter: 2024Q3

REPORT INFORMATION
  Report Type: Spontaneous
  Country: US (occurrence: US)
  Receive Date: 20240819
  Receipt Date: 20240819
  Transmission Date: 20241017
  Serious: No
  Sender: NOVARTIS
  Company Number: US-002147023-NVSC2024US167259

PATIENT
  Age: 77 Year
  Sex: Female

DRUGS (3)
  1. LEQVIO [Suspect]
     Active Substance: INCLISIRAN SODIUM
     Indication: Blood cholesterol increased
     Dosage: 284 MG (FIRST INJECTION)
     Route: 058
     Dates: start: 20230711
  2. LEQVIO [Suspect]
     Active Substance: INCLISIRAN SODIUM
     Dosage: 284 MG (FIRST INJECTION)
     Route: 058
     Dates: start: 20231003
  3. ZETIA [Suspect]
     Active Substance: EZETIMIBE
     Indication: Blood cholesterol increased
     Dosage: UNK
     Route: 065

REACTIONS (1)
  - Arthralgia [Unknown]
